FAERS Safety Report 8326935-5 (Version None)
Quarter: 2012Q2

REPORT INFORMATION
  Report Type: 
  Country: None (occurrence: None)
  Receive Date: 20120501
  Receipt Date: 20120425
  Transmission Date: 20120825
  Serious: Yes (Hospitalization)
  Sender: FDA-Public Use
  Company Number: CO-ELI_LILLY_AND_COMPANY-CO201204009570

PATIENT
  Age: 24 Year
  Sex: Female

DRUGS (2)
  1. HUMALOG [Suspect]
     Indication: TYPE 1 DIABETES MELLITUS
     Dosage: 26 U, QD
     Route: 058
  2. ALAPRYL [Concomitant]
     Dosage: UNK

REACTIONS (3)
  - URINARY TRACT INFECTION [None]
  - SINUSITIS [None]
  - BLISTER [None]
